FAERS Safety Report 5560283-1 (Version None)
Quarter: 2007Q4

REPORT INFORMATION
  Report Type: 
  Country: None (occurrence: None)
  Receive Date: 20071214
  Receipt Date: 20071101
  Transmission Date: 20080405
  Serious: Yes (Hospitalization)
  Sender: FDA-Public Use
  Company Number: US-ABBOTT-07P-163-0423210-00

PATIENT
  Sex: Male
  Weight: 74.456 kg

DRUGS (7)
  1. HUMIRA [Suspect]
     Indication: RHEUMATOID ARTHRITIS
     Route: 058
  2. HUMIRA [Suspect]
     Dosage: SYRINGE
     Route: 058
     Dates: start: 20050101
  3. LEFLUNOMIDE [Concomitant]
     Indication: RHEUMATOID ARTHRITIS
  4. LEFLUNOMIDE [Concomitant]
  5. PREDNISONE [Concomitant]
     Indication: DRUG USE FOR UNKNOWN INDICATION
  6. PARECOXIB SODIUM [Concomitant]
     Indication: DRUG USE FOR UNKNOWN INDICATION
  7. PARECOXIB SODIUM [Concomitant]

REACTIONS (8)
  - ARTHRALGIA [None]
  - BLOOD PRESSURE INCREASED [None]
  - HYPOVENTILATION [None]
  - INFECTION [None]
  - JOINT RANGE OF MOTION DECREASED [None]
  - JOINT STIFFNESS [None]
  - OEDEMA [None]
  - RHEUMATOID ARTHRITIS [None]
